FAERS Safety Report 10442259 (Version 1)
Quarter: 2014Q3

REPORT INFORMATION
  Report Type: Spontaneous
  Country: US (occurrence: US)
  Receive Date: 20140909
  Receipt Date: 20140909
  Transmission Date: 20150326
  Serious: Yes (Hospitalization)
  Sender: FDA-Public Use
  Company Number: US-ENDO PHARMACEUTICALS INC.-AMIT20140028

PATIENT
  Age: 71 Year
  Sex: Female

DRUGS (9)
  1. GABAPENTIN. [Concomitant]
     Active Substance: GABAPENTIN
     Indication: PAIN
     Dosage: UNKNOWN
     Route: 065
  2. AMITRIPTYLINE HCL [Suspect]
     Active Substance: AMITRIPTYLINE
     Route: 048
  3. NEURONTIN [Concomitant]
     Active Substance: GABAPENTIN
     Indication: PAIN
     Dosage: UNKNOWN
     Route: 065
  4. OXYCODONE/ACETAMINOPHEN TABLETS 10MG/325MG [Concomitant]
     Active Substance: ACETAMINOPHEN\OXYCODONE HYDROCHLORIDE
     Indication: PAIN
     Dosage: 10/325MG
     Route: 048
  5. ZOLOFT [Concomitant]
     Active Substance: SERTRALINE HYDROCHLORIDE
     Indication: PRODUCT USED FOR UNKNOWN INDICATION
     Dosage: UNKNOWN
     Route: 065
  6. AMITRIPTYLINE HCL [Suspect]
     Active Substance: AMITRIPTYLINE
     Dosage: UNKNOWN
     Route: 048
     Dates: start: 1984
  7. ANTIHYPERTENSIVES [Concomitant]
     Active Substance: UNSPECIFIED INGREDIENT
     Indication: HYPERTENSION
     Dosage: UNKNOWN
     Route: 065
  8. AMITRIPTYLINE HCL [Suspect]
     Active Substance: AMITRIPTYLINE
     Indication: PAIN
     Route: 048
     Dates: end: 201408
  9. AMITRIPTYLINE HCL [Suspect]
     Active Substance: AMITRIPTYLINE
     Route: 048
     Dates: start: 201408, end: 201408

REACTIONS (6)
  - Muscle spasms [Unknown]
  - Fatigue [Unknown]
  - Fall [Unknown]
  - Urinary tract infection [Unknown]
  - Confusional state [Unknown]
  - Somnolence [Unknown]

NARRATIVE: CASE EVENT DATE: 201408
